FAERS Safety Report 8177629-0 (Version None)
Quarter: 2012Q1

REPORT INFORMATION
  Report Type: 
  Country: None (occurrence: None)
  Receive Date: 20120301
  Receipt Date: 20120222
  Transmission Date: 20120608
  Serious: Yes (Other)
  Sender: FDA-Public Use
  Company Number: PHHY2012DE016037

PATIENT
  Sex: Female
  Weight: 73 kg

DRUGS (2)
  1. GILENYA [Suspect]
     Indication: MULTIPLE SCLEROSIS
     Dosage: 0.5 MG, QD
     Route: 048
     Dates: start: 20111121, end: 20111207
  2. CYMBALTA [Concomitant]
     Indication: DEPRESSION
     Dosage: 30 MG, UNK
     Route: 048

REACTIONS (4)
  - BLOOD PRESSURE ABNORMAL [None]
  - VENTRICULAR EXTRASYSTOLES [None]
  - LIVER FUNCTION TEST ABNORMAL [None]
  - DRUG TOLERANCE DECREASED [None]
